FAERS Safety Report 17429889 (Version 1)
Quarter: 2020Q1

REPORT INFORMATION
  Report Type: Spontaneous
  Country: US (occurrence: US)
  Receive Date: 20200203
  Receipt Date: 20200203
  Transmission Date: 20200409
  Serious: Yes (Hospitalization)
  Sender: FDA-Public Use
  Company Number: None

PATIENT
  Age: 63 Year
  Sex: Male

DRUGS (1)
  1. CAPECITABINE  500MG TAB [Suspect]
     Active Substance: CAPECITABINE
     Indication: COLON CANCER
     Dosage: AS DIRECTED
     Route: 048
     Dates: start: 20200116

REACTIONS (2)
  - Thrombosis [None]
  - Peripheral coldness [None]

NARRATIVE: CASE EVENT DATE: 202001
